FAERS Safety Report 9753747 (Version 1)
Quarter: 2013Q4

REPORT INFORMATION
  Report Type: Spontaneous
  Country: US (occurrence: US)
  Receive Date: 20131213
  Receipt Date: 20131213
  Transmission Date: 20140711
  Serious: No
  Sender: FDA-Public Use
  Company Number: US-GILEAD-2010-0026736

PATIENT
  Age: 56 Year
  Sex: Female
  Weight: 98.88 kg

DRUGS (20)
  1. LETAIRIS [Suspect]
     Indication: PULMONARY ARTERIAL HYPERTENSION
     Route: 048
     Dates: start: 20090819
  2. FLUXENTINE [Concomitant]
  3. COREG [Concomitant]
  4. PRINIVIL [Concomitant]
  5. LANOXIN [Concomitant]
  6. FUROSEMIDE [Concomitant]
  7. TRAZODONE [Concomitant]
  8. LYRICA [Concomitant]
  9. TIZIANIDINE HCL [Concomitant]
  10. SIMVASTATIN [Concomitant]
  11. METFORMIN HCL [Concomitant]
  12. ATROVENT INHALER [Concomitant]
  13. ALBUTEROL [Concomitant]
  14. POTASSIUM CHLOR [Concomitant]
  15. LORTAB [Concomitant]
  16. OXYCODONE [Concomitant]
  17. TYLENOL PM [Concomitant]
  18. CINNAMON [Concomitant]
  19. MULTIVITAMIN [Concomitant]
  20. FISH OIL [Concomitant]

REACTIONS (3)
  - Dizziness [Unknown]
  - Dyspnoea [Unknown]
  - Headache [Unknown]
